FAERS Safety Report 16058184 (Version 3)
Quarter: 2020Q4

REPORT INFORMATION
  Report Type: Report from Study
  Country: US (occurrence: US)
  Receive Date: 20190311
  Receipt Date: 20201202
  Transmission Date: 20210113
  Serious: Yes (Other)
  Sender: FDA-Public Use
  Company Number: US-JNJFOC-20181141499

PATIENT
  Age: 7 Decade
  Sex: Male
  Weight: 70.37 kg

DRUGS (1)
  1. STELARA [Suspect]
     Active Substance: USTEKINUMAB
     Indication: PSORIASIS
     Route: 058
     Dates: start: 2018, end: 20181031

REACTIONS (9)
  - Coronavirus infection [Recovering/Resolving]
  - Infectious mononucleosis [Recovering/Resolving]
  - Pneumonia klebsiella [Recovering/Resolving]
  - Influenza [Recovering/Resolving]
  - Herpes zoster [Recovered/Resolved]
  - Bordetella test positive [Recovering/Resolving]
  - Enterovirus infection [Recovering/Resolving]
  - Haemophilus infection [Recovering/Resolving]
  - Rubella [Recovering/Resolving]

NARRATIVE: CASE EVENT DATE: 2018
